FAERS Safety Report 6934783-3 (Version None)
Quarter: 2010Q3

REPORT INFORMATION
  Report Type: 
  Country: None (occurrence: None)
  Receive Date: 20100820
  Receipt Date: 20100805
  Transmission Date: 20110219
  Serious: Yes (Hospitalization, Other)
  Sender: FDA-Public Use
  Company Number: PHHY2010US45272

PATIENT
  Sex: Male

DRUGS (1)
  1. GLEEVEC [Suspect]
     Dosage: 400 MG, QD
     Route: 048
     Dates: start: 20100601

REACTIONS (5)
  - BLOOD POTASSIUM INCREASED [None]
  - CARDIAC DISORDER [None]
  - DEHYDRATION [None]
  - OEDEMA PERIPHERAL [None]
  - RENAL IMPAIRMENT [None]
